FAERS Safety Report 8509274-9 (Version None)
Quarter: 2012Q3

REPORT INFORMATION
  Report Type: 
  Country: None (occurrence: None)
  Receive Date: 20120713
  Receipt Date: 20120705
  Transmission Date: 20120928
  Serious: No
  Sender: FDA-Public Use
  Company Number: US-BAYER-2012-067428

PATIENT
  Age: 73 Year
  Sex: Female

DRUGS (2)
  1. GADAVIST [Suspect]
     Dosage: UNK
     Dates: start: 20120627, end: 20120627
  2. GADAVIST [Suspect]
     Dosage: UNK
     Dates: start: 20120703, end: 20120703

REACTIONS (4)
  - HYPERHIDROSIS [None]
  - PALLOR [None]
  - NAUSEA [None]
  - FEELING HOT [None]
